FAERS Safety Report 12623405 (Version 2)
Quarter: 2016Q4

REPORT INFORMATION
  Report Type: Spontaneous
  Country: FR (occurrence: FR)
  Receive Date: 20160804
  Receipt Date: 20161004
  Transmission Date: 20170207
  Serious: Yes (Other)
  Sender: FDA-Public Use
  Company Number: FR-SA-2016SA137993

PATIENT
  Age: 83 Year
  Sex: Female

DRUGS (10)
  1. LOVENOX [Suspect]
     Active Substance: ENOXAPARIN SODIUM
     Route: 058
     Dates: start: 20160528, end: 20160606
  2. ORAMORPH [Suspect]
     Active Substance: MORPHINE SULFATE
     Route: 048
  3. OPHTIM [Concomitant]
     Route: 047
  4. FORADIL [Concomitant]
     Active Substance: FORMOTEROL FUMARATE
     Dosage: ROUTE: RESPIRATORY (INHALATION).
  5. DOLIPRANE [Suspect]
     Active Substance: ACETAMINOPHEN
     Route: 048
     Dates: start: 20160528, end: 20160603
  6. ZOLEDRONIC ACID [Suspect]
     Active Substance: ZOLEDRONIC ACID
     Indication: ANALGESIC THERAPY
     Route: 042
     Dates: start: 20160602, end: 20160602
  7. ORAMORPH [Suspect]
     Active Substance: MORPHINE SULFATE
     Route: 048
     Dates: start: 20160527, end: 20160606
  8. AMLODIPINE [Concomitant]
     Active Substance: AMLODIPINE BESYLATE
     Route: 048
  9. QVAR [Concomitant]
     Active Substance: BECLOMETHASONE DIPROPIONATE
     Dosage: ROUTE: RESPIRATORY (INHALATION).
  10. MOVICOL [Suspect]
     Active Substance: POLYETHYLENE GLYCOL 3350\POTASSIUM CHLORIDE\SODIUM BICARBONATE\SODIUM CHLORIDE
     Dosage: DOSE-2 SACHETS
     Route: 048
     Dates: start: 20160528

REACTIONS (4)
  - Blood alkaline phosphatase increased [Recovering/Resolving]
  - Cholestasis [Recovering/Resolving]
  - Gamma-glutamyltransferase increased [Recovering/Resolving]
  - Transaminases increased [Recovering/Resolving]

NARRATIVE: CASE EVENT DATE: 20160603
